FAERS Safety Report 15904491 (Version 1)
Quarter: 2019Q1

REPORT INFORMATION
  Report Type: Spontaneous
  Country: FR (occurrence: FR)
  Receive Date: 20190204
  Receipt Date: 20190204
  Transmission Date: 20190417
  Serious: Yes (Hospitalization)
  Sender: FDA-Public Use
  Company Number: FR-ZYDUS-033065

PATIENT
  Age: 62 Year
  Sex: Male
  Weight: 73.7 kg

DRUGS (13)
  1. LERCANIDIPINE [Concomitant]
     Active Substance: LERCANIDIPINE
  2. PANTOPRAZOLE [Concomitant]
     Active Substance: PANTOPRAZOLE
  3. ATORVASTATIN [Suspect]
     Active Substance: ATORVASTATIN
     Indication: PRODUCT USED FOR UNKNOWN INDICATION
     Route: 048
     Dates: end: 20181109
  4. ESIDREX [Suspect]
     Active Substance: HYDROCHLOROTHIAZIDE
     Indication: HYPERTENSION
     Route: 048
     Dates: end: 20181109
  5. FLUTICASONE PROPIONATE/SALMETEROL [Concomitant]
  6. GEMZAR [Suspect]
     Active Substance: GEMCITABINE HYDROCHLORIDE
     Indication: TRANSITIONAL CELL CARCINOMA
     Route: 042
     Dates: start: 20180629, end: 20181025
  7. ONDANSETRON [Suspect]
     Active Substance: ONDANSETRON
     Indication: PREMEDICATION
     Route: 042
     Dates: end: 20181108
  8. PARACETAMOL [Concomitant]
     Active Substance: ACETAMINOPHEN
  9. NEBIVOLOL. [Concomitant]
     Active Substance: NEBIVOLOL
  10. EZETIMIBE. [Suspect]
     Active Substance: EZETIMIBE
     Indication: PRODUCT USED FOR UNKNOWN INDICATION
     Route: 048
     Dates: end: 20181109
  11. CARBOPLATIN. [Suspect]
     Active Substance: CARBOPLATIN
     Indication: TRANSITIONAL CELL CARCINOMA
     Route: 042
     Dates: start: 20180629, end: 20181025
  12. METFORMIN [Concomitant]
     Active Substance: METFORMIN HYDROCHLORIDE
  13. OXYCODONE [Concomitant]
     Active Substance: OXYCODONE

REACTIONS (3)
  - Vascular purpura [Recovered/Resolved]
  - Livedo reticularis [Recovering/Resolving]
  - Skin necrosis [Recovered/Resolved]

NARRATIVE: CASE EVENT DATE: 201807
